FAERS Safety Report 24321379 (Version 1)
Quarter: 2024Q3

REPORT INFORMATION
  Report Type: Spontaneous
  Country: US (occurrence: US)
  Receive Date: 20240916
  Receipt Date: 20240916
  Transmission Date: 20241017
  Serious: Yes (Hospitalization)
  Sender: DR REDDYS
  Company Number: US-DRL-USA-SPO/USA/24/0013303

PATIENT
  Age: 17 Year
  Sex: Female

DRUGS (12)
  1. MELOXICAM [Suspect]
     Active Substance: MELOXICAM
     Indication: Neuralgia
  2. MORPHINE [Suspect]
     Active Substance: MORPHINE
     Indication: Neuralgia
  3. OXYCODONE [Concomitant]
     Active Substance: OXYCODONE
     Indication: Neuralgia
  4. GABAPENTIN [Concomitant]
     Active Substance: GABAPENTIN
     Indication: Neuralgia
  5. CYCLOBENZAPRINE [Concomitant]
     Active Substance: CYCLOBENZAPRINE
     Indication: Neuralgia
  6. BUPRENORPHINE [Concomitant]
     Active Substance: BUPRENORPHINE
     Indication: Neuralgia
  7. METHADONE [Concomitant]
     Active Substance: METHADONE HYDROCHLORIDE
     Indication: Neuralgia
  8. KETAMINE [Concomitant]
     Active Substance: KETAMINE
     Indication: Neuralgia
  9. LIDOCAINE [Concomitant]
     Active Substance: LIDOCAINE
     Indication: Neuralgia
  10. AMITRIPTYLINE [Concomitant]
     Active Substance: AMITRIPTYLINE
     Indication: Neuralgia
  11. DULOXETINE [Concomitant]
     Active Substance: DULOXETINE
     Indication: Neuralgia
  12. ACETAMINOPHEN [Concomitant]
     Active Substance: ACETAMINOPHEN
     Indication: Neuralgia

REACTIONS (2)
  - Drug ineffective [Unknown]
  - Product use in unapproved indication [Unknown]
